FAERS Safety Report 5695138-5 (Version None)
Quarter: 2008Q2

REPORT INFORMATION
  Report Type: 
  Country: None (occurrence: None)
  Receive Date: 20080404
  Receipt Date: 20080324
  Transmission Date: 20081010
  Serious: Yes (Hospitalization)
  Sender: FDA-Public Use
  Company Number: US-WYE-H03253808

PATIENT
  Age: 46 Year
  Sex: Female

DRUGS (7)
  1. EFFEXOR XR [Suspect]
     Dosage: UNKNOWN
  2. ALCOHOL [Suspect]
     Dosage: UNKNOWN
  3. AMBIEN [Suspect]
     Dosage: UNKNOWN
  4. PROVIGIL [Suspect]
     Dosage: UNKNOWN
  5. DITROPAN [Suspect]
     Dosage: UNKNOWN
  6. CHANTIX [Suspect]
     Indication: EX-SMOKER
     Dosage: STARTER PACK
     Dates: start: 20070518
  7. NEURONTIN [Suspect]
     Dosage: UNKNOWN

REACTIONS (1)
  - MENTAL DISORDER [None]
